FAERS Safety Report 8168246-7 (Version None)
Quarter: 2012Q1

REPORT INFORMATION
  Report Type: 
  Country: None (occurrence: None)
  Receive Date: 20120222
  Receipt Date: 20120209
  Transmission Date: 20120608
  Serious: Yes (Other)
  Sender: FDA-Public Use
  Company Number: 2012MA001875

PATIENT

DRUGS (1)
  1. METOCLOPRAMIDE [Suspect]
     Indication: PRODUCT USED FOR UNKNOWN INDICATION
     Dates: start: 20040201, end: 20071101

REACTIONS (8)
  - ESSENTIAL TREMOR [None]
  - EMOTIONAL DISORDER [None]
  - RESTLESS LEGS SYNDROME [None]
  - TREMOR [None]
  - TARDIVE DYSKINESIA [None]
  - CONDITION AGGRAVATED [None]
  - ECONOMIC PROBLEM [None]
  - INJURY [None]
